FAERS Safety Report 20430165 (Version 1)
Quarter: 2022Q1

REPORT INFORMATION
  Report Type: Report from Study
  Country: FR (occurrence: FR)
  Receive Date: 20220204
  Receipt Date: 20220204
  Transmission Date: 20220423
  Serious: Yes (Other)
  Sender: FDA-Public Use
  Company Number: FR-SERVIER-S19012151

PATIENT

DRUGS (7)
  1. PEGASPARGASE [Suspect]
     Active Substance: PEGASPARGASE
     Indication: Acute lymphocytic leukaemia
     Dosage: 900 IU, QD
     Route: 042
     Dates: start: 20190820
  2. VINCRISTINE [Suspect]
     Active Substance: VINCRISTINE
     Indication: Acute lymphocytic leukaemia
     Dosage: 1 MG, ON D1, D8, D29, D36
     Route: 042
     Dates: start: 20190813
  3. MERCAPTOPURINE [Suspect]
     Active Substance: MERCAPTOPURINE
     Indication: Acute lymphocytic leukaemia
     Dosage: 36 MG QD FROM D1 TO D21, D29 TO D49
     Route: 048
     Dates: start: 20190813, end: 20191014
  4. BACTRIM [Suspect]
     Active Substance: SULFAMETHOXAZOLE\TRIMETHOPRIM
     Indication: Pneumocystis jirovecii pneumonia
     Dosage: 500 MG, QD
     Route: 048
     Dates: start: 20190701
  5. TN UNSPECIFIED [Concomitant]
     Indication: Acute lymphocytic leukaemia
     Dosage: 12 MG ON D5, D30
     Route: 037
     Dates: start: 20190817
  6. TN UNSPECIFIED [Concomitant]
     Dosage: 17.5 MG ON D8, D15, D22, D36, D43, D50
     Route: 048
     Dates: start: 20190820
  7. TN UNSPECIFIED [Concomitant]
     Indication: Acute lymphocytic leukaemia
     Dosage: 4.5 MG QD FROM D1 TO D5, D29 TO D33
     Route: 048
     Dates: start: 20190813, end: 20190928

REACTIONS (1)
  - Hypoglycaemia [Recovered/Resolved]

NARRATIVE: CASE EVENT DATE: 20191015
